FAERS Safety Report 5305620-8 (Version None)
Quarter: 2007Q2

REPORT INFORMATION
  Report Type: 
  Country: None (occurrence: None)
  Receive Date: 20070419
  Receipt Date: 20070419
  Transmission Date: 20071010
  Serious: Yes (Other)
  Sender: FDA-Public Use
  Company Number: None

PATIENT
  Sex: Female
  Weight: 90.7194 kg

DRUGS (1)
  1. ZELNORM [Suspect]
     Indication: IRRITABLE BOWEL SYNDROME
     Dosage: 6MG  TWICE DAILY  PO
     Route: 048
     Dates: start: 20031101, end: 20070415

REACTIONS (8)
  - CHEST PAIN [None]
  - DYSPEPSIA [None]
  - DYSPNOEA [None]
  - FLATULENCE [None]
  - HEADACHE [None]
  - OVARIAN CYST [None]
  - RENAL CYST [None]
  - SINUSITIS [None]
